FAERS Safety Report 8136680 (Version 3)
Quarter: 2013Q3

REPORT INFORMATION
  Report Type: Spontaneous
  Country: US (occurrence: US)
  Receive Date: 20110914
  Receipt Date: 20130813
  Transmission Date: 20140515
  Serious: Yes (Hospitalization)
  Sender: FDA-Public Use
  Company Number: US-B.I. PHARMACEUTICALS,INC./RIDGEFIELD-2011-BP-21748BP

PATIENT
  Age: 75 Year
  Sex: Female
  Weight: 60.78 kg

DRUGS (5)
  1. PRADAXA [Suspect]
     Indication: ATRIAL FIBRILLATION
     Dosage: 300 MG
     Route: 048
     Dates: start: 201105, end: 20110902
  2. PRADAXA [Suspect]
     Dosage: 150 MG
     Route: 048
  3. PREVACID [Concomitant]
     Dosage: 30 MG
  4. AMIODARONE [Concomitant]
     Dosage: 200 MG
  5. ASPIRIN [Concomitant]
     Dosage: 81 MG

REACTIONS (4)
  - Gastrointestinal haemorrhage [Recovered/Resolved]
  - Gastritis [Recovered/Resolved]
  - Duodenitis [Recovered/Resolved]
  - Oesophagitis [Recovered/Resolved]
